FAERS Safety Report 6422075-0 (Version None)
Quarter: 2009Q4

REPORT INFORMATION
  Report Type: 
  Country: None (occurrence: None)
  Receive Date: 20091029
  Receipt Date: 20091029
  Transmission Date: 20100525
  Serious: No
  Sender: FDA-Public Use
  Company Number: None

PATIENT
  Sex: Male
  Weight: 90.7194 kg

DRUGS (2)
  1. OXYCODONE 2.5/APAP 500 [Suspect]
     Indication: NEPHROLITHIASIS
     Dosage: 1 OR 2 EVERY 4HRS PO
     Route: 048
     Dates: start: 20070629, end: 20091002
  2. OXYCODONE 2.5/APAP 500 [Suspect]
     Indication: RENAL PAIN
     Dosage: 1 OR 2 EVERY 4HRS PO
     Route: 048
     Dates: start: 20070629, end: 20091002

REACTIONS (2)
  - PRODUCT SUBSTITUTION ISSUE [None]
  - VOMITING [None]
